FAERS Safety Report 12091832 (Version 1)
Quarter: 2016Q1

REPORT INFORMATION
  Report Type: Spontaneous
  Country: KE (occurrence: KE)
  Receive Date: 20160218
  Receipt Date: 20160218
  Transmission Date: 20160526
  Serious: Yes (Other)
  Sender: FDA-Public Use
  Company Number: KE-ASTRAZENECA-2016SE16812

PATIENT
  Sex: Male

DRUGS (1)
  1. MERONEM [Suspect]
     Active Substance: MEROPENEM
     Route: 042

REACTIONS (1)
  - Seizure [Unknown]
